FAERS Safety Report 16169271 (Version 1)
Quarter: 2019Q2

REPORT INFORMATION
  Report Type: Spontaneous
  Country: US (occurrence: US)
  Receive Date: 20190408
  Receipt Date: 20190408
  Transmission Date: 20190711
  Serious: Yes (Hospitalization)
  Sender: FDA-Public Use
  Company Number: US-ELI_LILLY_AND_COMPANY-US201904002413

PATIENT
  Age: 38 Year
  Sex: Female

DRUGS (3)
  1. OLANZAPINE. [Suspect]
     Active Substance: OLANZAPINE
     Indication: SCHIZOAFFECTIVE DISORDER
     Dosage: 30 MG, DAILY
     Route: 065
  2. CLOZAPINE. [Interacting]
     Active Substance: CLOZAPINE
     Indication: SCHIZOAFFECTIVE DISORDER
     Dosage: 500 MG, DAILY
     Route: 065
  3. PAROXETINE. [Interacting]
     Active Substance: PAROXETINE
     Indication: SCHIZOAFFECTIVE DISORDER
     Dosage: 40 MG, DAILY
     Route: 065

REACTIONS (13)
  - Encephalopathy [Recovering/Resolving]
  - Salivary hypersecretion [Recovering/Resolving]
  - Hypokinesia [Recovering/Resolving]
  - Depressed level of consciousness [Recovering/Resolving]
  - Drug level increased [Recovering/Resolving]
  - Somnolence [Recovering/Resolving]
  - Focal dyscognitive seizures [Recovering/Resolving]
  - Sinus tachycardia [Recovering/Resolving]
  - Aggression [Recovering/Resolving]
  - Dysarthria [Recovering/Resolving]
  - Drug interaction [Recovering/Resolving]
  - Overdose [Unknown]
  - Electroencephalogram abnormal [Recovering/Resolving]
